FAERS Safety Report 9477528 (Version 1)
Quarter: 2013Q3

REPORT INFORMATION
  Report Type: Spontaneous
  Country: FR (occurrence: FR)
  Receive Date: 20130827
  Receipt Date: 20130827
  Transmission Date: 20140515
  Serious: Yes (Hospitalization)
  Sender: FDA-Public Use
  Company Number: FR-ROCHE-1265393

PATIENT
  Age: 72 Year
  Sex: Male

DRUGS (3)
  1. AVASTIN [Suspect]
     Indication: COLORECTAL ADENOCARCINOMA
     Route: 042
     Dates: start: 20130620
  2. OXALIPLATIN [Suspect]
     Indication: COLORECTAL ADENOCARCINOMA
     Dosage: THIRD CYCLE WAS RECEIVED ON 20/JUN/2013.
     Route: 042
     Dates: end: 20130718
  3. TOMUDEX [Suspect]
     Indication: COLORECTAL ADENOCARCINOMA
     Dosage: THIRD CYCLE WAS RECEIVED ON 20/JUN/2013.
     Route: 042

REACTIONS (4)
  - Vomiting [Recovered/Resolved]
  - Hypertension [Recovered/Resolved]
  - Hyperthermia [Unknown]
  - Chills [Recovered/Resolved]
